FAERS Safety Report 7055154-8 (Version None)
Quarter: 2010Q4

REPORT INFORMATION
  Report Type: 
  Country: None (occurrence: None)
  Receive Date: 20101021
  Receipt Date: 20101008
  Transmission Date: 20110411
  Serious: Yes (Other)
  Sender: FDA-Public Use
  Company Number: PHHY2010TR66568

PATIENT
  Sex: Male

DRUGS (1)
  1. ACLASTA [Suspect]

REACTIONS (1)
  - ATRIOVENTRICULAR BLOCK [None]
